FAERS Safety Report 7611315-8 (Version None)
Quarter: 2011Q3

REPORT INFORMATION
  Report Type: 
  Country: None (occurrence: None)
  Receive Date: 20110707
  Receipt Date: 20110623
  Transmission Date: 20111222
  Serious: Yes (Other)
  Sender: FDA-Public Use
  Company Number: 2011US0123

PATIENT
  Age: 14 Year
  Sex: Female
  Weight: 44.4 kg

DRUGS (10)
  1. RANTIDINE (RANTIDINE) [Concomitant]
  2. SODIUM POLYSTYRENE SULFONATE (SODIUM POLYSTYRENE SULFONATE) [Concomitant]
  3. PANTOPRAZOLE [Concomitant]
  4. KINERET [Suspect]
     Indication: JUVENILE ARTHRITIS
     Dosage: 100 MG, 1 IN 1 D, SUBCUTANEOUS
     Route: 058
     Dates: start: 20110422, end: 20110428
  5. ALTEPLASE (ALTEPLASE) [Concomitant]
  6. METHYLPREDNISOLONE [Concomitant]
  7. ONDANSETRON [Concomitant]
  8. ALBUMIN (HUMAN) [Concomitant]
  9. ACETAMINOPHEN [Concomitant]
  10. RASBURICASE (RASBURICASE) [Concomitant]

REACTIONS (4)
  - FLUID OVERLOAD [None]
  - RETINAL INFARCTION [None]
  - FAMILIAL HAEMOPHAGOCYTIC LYMPHOHISTIOCYTOSIS [None]
  - DRUG INEFFECTIVE [None]
